FAERS Safety Report 4970874-4 (Version None)
Quarter: 2006Q2

REPORT INFORMATION
  Report Type: 
  Country: None (occurrence: None)
  Receive Date: 20060406
  Receipt Date: 20060327
  Transmission Date: 20061013
  Serious: Yes (Other)
  Sender: FDA-Public Use
  Company Number: B0417504A

PATIENT
  Age: 64 Year
  Sex: Female

DRUGS (7)
  1. ALKERAN [Suspect]
     Indication: MULTIPLE MYELOMA
  2. VINCRISTINE [Concomitant]
  3. DOXORUBICIN HCL [Concomitant]
  4. DEXAMETHASONE [Concomitant]
  5. CYCLOPHOSPHAMIDE [Concomitant]
  6. GRANULOCYTE CO. STIM. FACT [Concomitant]
  7. STEM CELL TRANSPLANT [Concomitant]

REACTIONS (12)
  - ACUTE RESPIRATORY FAILURE [None]
  - BLOOD STEM CELL TRANSPLANT FAILURE [None]
  - DRUG TOXICITY [None]
  - HAEMODIALYSIS [None]
  - INFECTION [None]
  - NEUTROPHIL COUNT DECREASED [None]
  - PLATELET COUNT DECREASED [None]
  - PNEUMONIA [None]
  - POLYNEUROPATHY [None]
  - STEM CELL TRANSPLANT [None]
  - STOMATITIS [None]
  - SURGICAL PROCEDURE REPEATED [None]
